FAERS Safety Report 15771484 (Version 1)
Quarter: 2018Q4

REPORT INFORMATION
  Report Type: Spontaneous
  Country: US (occurrence: US)
  Receive Date: 20181228
  Receipt Date: 20181228
  Transmission Date: 20190205
  Serious: No
  Sender: FDA-Public Use
  Company Number: US-MMM-O72CUNZX

PATIENT
  Sex: Female

DRUGS (2)
  1. SUBLOCADE [Suspect]
     Active Substance: BUPRENORPHINE
     Indication: DRUG DEPENDENCE
     Dosage: 300 MG, QMO
     Route: 065
     Dates: start: 2018
  2. METHAMPHETAMINE                    /00069101/ [Suspect]
     Active Substance: METHAMPHETAMINE
     Indication: WEIGHT DECREASED
     Dosage: UNK
     Route: 065

REACTIONS (1)
  - Drug abuse [Unknown]

NARRATIVE: CASE EVENT DATE: 2018
